FAERS Safety Report 7623239 (Version 4)
Quarter: 2014Q1

REPORT INFORMATION
  Report Type: Spontaneous
  Country: US (occurrence: US)
  Receive Date: 20101011
  Receipt Date: 20140128
  Transmission Date: 20141002
  Serious: Yes (Other)
  Sender: FDA-Public Use
  Company Number: US-BAYER-201036053NA

PATIENT
  Age: 18 Year
  Sex: Female
  Weight: 68 kg

DRUGS (4)
  1. YAZ [Suspect]
     Indication: CONTRACEPTION
     Dosage: UNK UNK, UNK
     Route: 048
     Dates: start: 200710, end: 200809
  2. YAZ [Suspect]
     Indication: PREMENSTRUAL SYNDROME
     Dosage: UNK
     Dates: start: 20071019, end: 20080921
  3. YASMIN [Suspect]
  4. PREDNISONE [Concomitant]
     Indication: DERMATITIS CONTACT
     Dosage: UNK
     Dates: start: 20080811, end: 20080820

REACTIONS (6)
  - Cholecystectomy [None]
  - Cholecystitis chronic [None]
  - Biliary dyskinesia [None]
  - Abdominal pain [None]
  - Vomiting [None]
  - Nausea [None]
